FAERS Safety Report 6736308-4 (Version None)
Quarter: 2010Q2

REPORT INFORMATION
  Report Type: 
  Country: None (occurrence: None)
  Receive Date: 20100521
  Receipt Date: 20100514
  Transmission Date: 20101027
  Serious: Yes (Hospitalization, Disabling)
  Sender: FDA-Public Use
  Company Number: GXKR2010GB05456

PATIENT
  Age: 31 Year
  Sex: Female

DRUGS (1)
  1. LABETALOL (NGX) [Suspect]
     Indication: PREGNANCY INDUCED HYPERTENSION
     Dosage: 100 MG, UNK
     Route: 048
     Dates: start: 20100301, end: 20100331

REACTIONS (1)
  - PSYCHOTIC DISORDER [None]
